FAERS Safety Report 9955961 (Version 1)
Quarter: 2014Q1

REPORT INFORMATION
  Report Type: Report from Study
  Country: US (occurrence: US)
  Receive Date: 20140304
  Receipt Date: 20140304
  Transmission Date: 20141002
  Serious: No
  Sender: FDA-Public Use
  Company Number: US-ABBVIE-13P-163-1088248-00

PATIENT
  Age: 31 Year
  Sex: Female

DRUGS (7)
  1. HUMIRA [Suspect]
     Indication: PSORIASIS
     Dates: start: 20130330
  2. LABETALOL [Concomitant]
     Indication: BLOOD PRESSURE
  3. JOLIVETTE-28 [Concomitant]
     Indication: CONTRACEPTION
  4. ALLEGRA [Concomitant]
     Indication: HYPERSENSITIVITY
  5. MELATONIN [Concomitant]
     Indication: INSOMNIA
     Dosage: AT BEDTIME
  6. PRESCRIPTION CREAM(S) [Concomitant]
     Indication: PSORIASIS
     Dosage: DAILY AS NEEDED
  7. PRILOSEC [Concomitant]
     Indication: DYSPEPSIA

REACTIONS (3)
  - Injection site pain [Recovered/Resolved]
  - Injection site pain [Recovered/Resolved]
  - Dyspepsia [Recovered/Resolved]
